FAERS Safety Report 19666560 (Version 1)
Quarter: 2021Q3

REPORT INFORMATION
  Report Type: Spontaneous
  Country: NZ (occurrence: NZ)
  Receive Date: 20210806
  Receipt Date: 20210806
  Transmission Date: 20211014
  Serious: Yes (Other)
  Sender: FDA-Public Use
  Company Number: NZ-ABBVIE-21K-118-4021269-00

PATIENT

DRUGS (1)
  1. VENETOCLAX. [Suspect]
     Active Substance: VENETOCLAX
     Indication: CHRONIC LYMPHOCYTIC LEUKAEMIA
     Route: 048

REACTIONS (5)
  - Cytogenetic response [Unknown]
  - Laboratory test abnormal [Unknown]
  - Richter^s syndrome [Unknown]
  - Autoimmune haemolytic anaemia [Unknown]
  - Diffuse large B-cell lymphoma [Unknown]
